FAERS Safety Report 17228340 (Version 3)
Quarter: 2021Q1

REPORT INFORMATION
  Report Type: Spontaneous
  Country: US (occurrence: US)
  Receive Date: 20200103
  Receipt Date: 20210125
  Transmission Date: 20210419
  Serious: Yes (Hospitalization, Other)
  Sender: FDA-Public Use
  Company Number: US-TAKEDA-2020TUS000179

PATIENT

DRUGS (38)
  1. ULORIC [Suspect]
     Active Substance: FEBUXOSTAT
     Indication: GOUT
     Dosage: 40 MILLIGRAM
     Route: 048
     Dates: start: 20120319, end: 20180319
  2. ATORVASTATIN [Concomitant]
     Active Substance: ATORVASTATIN
     Dosage: UNK
  3. ASPIRIN [ACETYLSALICYLIC ACID] [Concomitant]
     Active Substance: ASPIRIN
  4. CEPHALEXIN [CEFALEXIN] [Concomitant]
     Active Substance: CEPHALEXIN
  5. HYDROXYZINE [Concomitant]
     Active Substance: HYDROXYZINE HYDROCHLORIDE
  6. ISOSORBIDE MONONITRATE. [Concomitant]
     Active Substance: ISOSORBIDE MONONITRATE
  7. LOPERAMIDE [Concomitant]
     Active Substance: LOPERAMIDE
  8. NITROSTAT [Concomitant]
     Active Substance: NITROGLYCERIN
  9. TAMULOSIN [Concomitant]
     Active Substance: TAMSULOSIN
  10. BUDESONIDE W/FORMOTEROL [Concomitant]
     Active Substance: BUDESONIDE\FORMOTEROL
     Dosage: UNK
  11. LIDOCAINE. [Concomitant]
     Active Substance: LIDOCAINE
  12. NEOMYCIN AND POLYMYXIN B SULFATES AND HYDROCORTISONE [Concomitant]
     Active Substance: HYDROCORTISONE\NEOMYCIN SULFATE\POLYMYXIN B SULFATE
  13. ONDANSETRON [Concomitant]
     Active Substance: ONDANSETRON
  14. RAPAFLO [Concomitant]
     Active Substance: SILODOSIN
  15. CLOBETASOL [Concomitant]
     Active Substance: CLOBETASOL
  16. LOXAPINE. [Concomitant]
     Active Substance: LOXAPINE
  17. METOPROLOL TARTRATE. [Concomitant]
     Active Substance: METOPROLOL TARTRATE
  18. AZITHROMYCIN ANHYDROUS. [Concomitant]
     Active Substance: AZITHROMYCIN ANHYDROUS
  19. ALFUZOSIN [Concomitant]
     Active Substance: ALFUZOSIN
  20. ALLOPURINOL. [Concomitant]
     Active Substance: ALLOPURINOL
  21. ATORVASTATIN [Concomitant]
     Active Substance: ATORVASTATIN
  22. BENICAR [Concomitant]
     Active Substance: OLMESARTAN MEDOXOMIL
  23. CEFDINIR. [Concomitant]
     Active Substance: CEFDINIR
  24. METRONIDAZOLE. [Concomitant]
     Active Substance: METRONIDAZOLE
  25. MUPIROCIN. [Concomitant]
     Active Substance: MUPIROCIN
  26. PROCHLORPERAZINE. [Concomitant]
     Active Substance: PROCHLORPERAZINE
  27. CRESTOR [Concomitant]
     Active Substance: ROSUVASTATIN CALCIUM
  28. KETOCONAZOLE. [Concomitant]
     Active Substance: KETOCONAZOLE
  29. LEVOFLOXACIN. [Concomitant]
     Active Substance: LEVOFLOXACIN
  30. LISINOPRIL. [Concomitant]
     Active Substance: LISINOPRIL
  31. ACETAMINOPHEN. [Concomitant]
     Active Substance: ACETAMINOPHEN
     Dosage: UNK
  32. BETAMETHASONE. [Concomitant]
     Active Substance: BETAMETHASONE
  33. BISACODYL. [Concomitant]
     Active Substance: BISACODYL
  34. ENOXAPARIN [Concomitant]
     Active Substance: ENOXAPARIN
  35. PREDNISONE. [Concomitant]
     Active Substance: PREDNISONE
  36. SULFAMETH/TRIMETH [Concomitant]
     Active Substance: SULFAMETHOXAZOLE\TRIMETHOPRIM
  37. TRAMADOL. [Concomitant]
     Active Substance: TRAMADOL
  38. ASPIRIN                            /00002701/ [Concomitant]
     Active Substance: ASPIRIN
     Dosage: UNK

REACTIONS (1)
  - Acute myocardial infarction [Not Recovered/Not Resolved]

NARRATIVE: CASE EVENT DATE: 20120525
